FAERS Safety Report 9293545 (Version 1)
Quarter: 2013Q2

REPORT INFORMATION
  Report Type: Spontaneous
  Country: FR (occurrence: FR)
  Receive Date: 20130516
  Receipt Date: 20130516
  Transmission Date: 20140414
  Serious: Yes (Hospitalization)
  Sender: FDA-Public Use
  Company Number: FR-GLAXOSMITHKLINE-B0890729A

PATIENT
  Age: 59 Year
  Sex: Male

DRUGS (8)
  1. DEROXAT [Suspect]
     Indication: PRODUCT USED FOR UNKNOWN INDICATION
     Dosage: 20MG PER DAY
     Route: 048
     Dates: start: 20130117, end: 20130304
  2. BIPRETERAX [Suspect]
     Indication: PRODUCT USED FOR UNKNOWN INDICATION
     Dosage: 1UNIT PER DAY
     Route: 048
     Dates: start: 20130304
  3. XANAX [Concomitant]
     Route: 065
     Dates: start: 20130117
  4. ATARAX [Concomitant]
     Route: 065
     Dates: start: 20130117
  5. JANUMET [Concomitant]
     Route: 065
  6. AMAREL [Concomitant]
     Route: 065
  7. LOGIMAX [Concomitant]
     Route: 065
  8. ZOCOR [Concomitant]
     Route: 065

REACTIONS (7)
  - Hyponatraemia [Recovered/Resolved]
  - Altered state of consciousness [Recovered/Resolved]
  - Motor dysfunction [Unknown]
  - Mutism [Unknown]
  - Mental impairment [Unknown]
  - Immobile [Unknown]
  - Ischaemic stroke [Unknown]
